FAERS Safety Report 7259172-6 (Version None)
Quarter: 2011Q1

REPORT INFORMATION
  Report Type: 
  Country: None (occurrence: None)
  Receive Date: 20110129
  Receipt Date: 20100629
  Transmission Date: 20110831
  Serious: Yes (Hospitalization)
  Sender: FDA-Public Use
  Company Number: US-ABBOTT-10P-163-0653630-00

PATIENT
  Sex: Male
  Weight: 81.72 kg

DRUGS (4)
  1. ASA [Concomitant]
     Indication: PRODUCT USED FOR UNKNOWN INDICATION
  2. VYTORIN [Concomitant]
     Indication: PRODUCT USED FOR UNKNOWN INDICATION
  3. HUMIRA [Suspect]
     Indication: PSORIASIS
     Route: 058
     Dates: start: 20090701
  4. MIRAPEX [Concomitant]
     Indication: PRODUCT USED FOR UNKNOWN INDICATION

REACTIONS (1)
  - KNEE ARTHROPLASTY [None]
